FAERS Safety Report 7874599-7 (Version None)
Quarter: 2011Q4

REPORT INFORMATION
  Report Type: 
  Country: None (occurrence: None)
  Receive Date: 20111031
  Receipt Date: 20111026
  Transmission Date: 20120403
  Serious: Yes (Hospitalization)
  Sender: FDA-Public Use
  Company Number: SE-PFIZER INC-2007032608

PATIENT
  Age: 59 Year
  Sex: Female
  Weight: 63 kg

DRUGS (18)
  1. POTASSIUM CHLORIDE [Concomitant]
     Route: 048
     Dates: start: 20041227
  2. LEVOTHYROXINE SODIUM [Concomitant]
     Route: 048
     Dates: start: 19800317
  3. TIPAROL [Concomitant]
     Route: 048
     Dates: start: 20070327, end: 20070421
  4. SUNITINIB MALATE [Suspect]
     Indication: GASTROINTESTINAL STROMAL TUMOUR
     Dosage: 25 MG, 1X/DAY
     Route: 048
     Dates: start: 20060216, end: 20070417
  5. ZINCFRIN [Concomitant]
     Route: 048
     Dates: start: 20070130
  6. CLEMASTINE FUMARATE [Concomitant]
     Route: 048
     Dates: start: 20050204
  7. XYLOCAINE [Concomitant]
     Route: 048
     Dates: start: 20060315
  8. PANTOPRAZOLE SODIUM [Concomitant]
  9. ZOLPIDEM TARTRATE [Concomitant]
  10. PROPAVAN [Concomitant]
     Route: 048
     Dates: start: 19830101
  11. LERGIGAN [Concomitant]
  12. INDERAL [Concomitant]
     Route: 048
     Dates: start: 20060803
  13. DIMETICONE [Concomitant]
     Route: 048
     Dates: start: 19780321
  14. ZYPREXA [Concomitant]
  15. LACTULOSE [Concomitant]
  16. FUROSEMIDE [Concomitant]
     Route: 048
     Dates: start: 20041227
  17. BETOLVEX [Concomitant]
     Route: 048
     Dates: start: 19730116
  18. FOLIC ACID [Concomitant]
     Route: 048
     Dates: start: 19730116

REACTIONS (1)
  - PNEUMONIA [None]
